FAERS Safety Report 6545782-8 (Version None)
Quarter: 2010Q1

REPORT INFORMATION
  Report Type: 
  Country: None (occurrence: None)
  Receive Date: 20100114
  Receipt Date: 20091005
  Transmission Date: 20100710
  Serious: No
  Sender: FDA-Public Use
  Company Number: 2009BM000249

PATIENT
  Age: 48 Year
  Sex: Male
  Weight: 99.7913 kg

DRUGS (2)
  1. KUVAN [Suspect]
     Indication: PHENYLKETONURIA
     Dosage: 2100 MG;QD;PO
     Route: 048
     Dates: start: 20090901
  2. PAROXETINE HCL [Concomitant]

REACTIONS (1)
  - DIARRHOEA [None]
